FAERS Safety Report 5991146-5 (Version None)
Quarter: 2008Q4

REPORT INFORMATION
  Report Type: 
  Country: None (occurrence: None)
  Receive Date: 20081202
  Receipt Date: 20080505
  Transmission Date: 20090506
  Serious: Yes (Disabling)
  Sender: FDA-Public Use
  Company Number: WAES 0805USA00893

PATIENT
  Age: 67 Year
  Sex: Female

DRUGS (3)
  1. FOSAMAX [Suspect]
     Indication: OSTEOPOROSIS PROPHYLAXIS
     Dosage: 5 MG/DAILY/PO  70 MG/WKY/PO
     Route: 048
     Dates: start: 20000206, end: 20011120
  2. FOSAMAX [Suspect]
     Indication: OSTEOPOROSIS PROPHYLAXIS
     Dosage: 5 MG/DAILY/PO  70 MG/WKY/PO
     Route: 048
     Dates: start: 20011121, end: 20060705
  3. . [Concomitant]

REACTIONS (7)
  - ANGIOPATHY [None]
  - DEVICE RELATED INFECTION [None]
  - OSTEONECROSIS [None]
  - PERIODONTITIS [None]
  - RESORPTION BONE INCREASED [None]
  - TOOTH LOSS [None]
  - WRIST FRACTURE [None]
